FAERS Safety Report 9878320 (Version 3)
Quarter: 2014Q3

REPORT INFORMATION
  Report Type: Spontaneous
  Country: US (occurrence: US)
  Receive Date: 20140206
  Receipt Date: 20140808
  Transmission Date: 20150326
  Serious: Yes (Hospitalization, Other)
  Sender: FDA-Public Use
  Company Number: US-BAYER-2014-018828

PATIENT
  Age: 18 Year
  Sex: Female
  Weight: 82.54 kg

DRUGS (2)
  1. MIRENA [Suspect]
     Active Substance: LEVONORGESTREL
     Indication: CONTRACEPTION
     Dosage: 20 MCG/24HR, CONT
     Route: 015
     Dates: start: 20081211, end: 20091001
  2. MIRENA [Suspect]
     Active Substance: LEVONORGESTREL
     Indication: MENORRHAGIA

REACTIONS (9)
  - Emotional distress [None]
  - Uterine perforation [None]
  - Device dislocation [None]
  - Injury [None]
  - Off label use [None]
  - Pelvic pain [None]
  - Pain [None]
  - Genital haemorrhage [None]
  - Device issue [None]

NARRATIVE: CASE EVENT DATE: 200902
